FAERS Safety Report 8559596-0 (Version None)
Quarter: 2012Q2

REPORT INFORMATION
  Report Type: 
  Country: None (occurrence: None)
  Receive Date: 20120418
  Receipt Date: 20100318
  Transmission Date: 20120825
  Serious: Yes (Other)
  Sender: FDA-Public Use
  Company Number: PHHY2010US24675

PATIENT
  Age: 2 Year
  Sex: Female
  Weight: 33 kg

DRUGS (1)
  1. ELIDEL [Suspect]
     Indication: ECZEMA
     Dosage: AS NEEDED ON FACE AND CHEST, TOPICAL
     Route: 061

REACTIONS (12)
  - EAR INFECTION [None]
  - DERMATITIS DIAPER [None]
  - PNEUMONIA [None]
  - NASAL CONGESTION [None]
  - VOMITING [None]
  - PYREXIA [None]
  - SINUSITIS [None]
  - WHEEZING [None]
  - COUGH [None]
  - RHINITIS ALLERGIC [None]
  - CANDIDIASIS [None]
  - RHINORRHOEA [None]
